FAERS Safety Report 20552585 (Version 1)
Quarter: 2022Q1

REPORT INFORMATION
  Report Type: Spontaneous
  Country: CN (occurrence: CN)
  Receive Date: 20220304
  Receipt Date: 20220304
  Transmission Date: 20220423
  Serious: Yes (Life-Threatening, Other)
  Sender: FDA-Public Use
  Company Number: CN-SA-SAC20220303000520

PATIENT
  Age: 41 Year
  Sex: Female
  Weight: 50 kg

DRUGS (4)
  1. ZOLPIDEM TARTRATE [Suspect]
     Active Substance: ZOLPIDEM TARTRATE
     Indication: Anxiety
     Dosage: 200 MG, QD
     Route: 048
     Dates: start: 20220109, end: 20220109
  2. LANSOPRAZOLE [Concomitant]
     Active Substance: LANSOPRAZOLE
     Dosage: 30 MG, QD
  3. DEXTROSE [Concomitant]
     Active Substance: DEXTROSE
     Dosage: UNK
  4. SODIUM [Concomitant]
     Active Substance: SODIUM
     Dosage: 500 ML, QD

REACTIONS (2)
  - Dysphoria [Recovering/Resolving]
  - Vomiting [Recovering/Resolving]

NARRATIVE: CASE EVENT DATE: 20220109
